FAERS Safety Report 24095477 (Version 1)
Quarter: 2024Q3

REPORT INFORMATION
  Report Type: Spontaneous
  Country: US (occurrence: US)
  Receive Date: 20240716
  Receipt Date: 20240716
  Transmission Date: 20241016
  Serious: No
  Sender: LEO PHARM
  Company Number: US-LEO Pharma-371923

PATIENT
  Age: 54 Year
  Sex: Male

DRUGS (3)
  1. ADBRY [Suspect]
     Active Substance: TRALOKINUMAB-LDRM
     Indication: Asthma
     Dosage: INJECT 4 SYRINGES UNDER THE SKIN ON DAY 1
     Route: 058
     Dates: start: 202406
  2. ADBRY [Suspect]
     Active Substance: TRALOKINUMAB-LDRM
     Indication: Asthma
     Dosage: THEN START MAINTENANCE DOSING AS DIRECTED ON DAY 15 OF 300MG EVERY 14 DAYS.
     Route: 058
  3. DUPIXENT [Concomitant]
     Active Substance: DUPILUMAB
     Indication: Product used for unknown indication

REACTIONS (2)
  - Back pain [Unknown]
  - Off label use [Unknown]
